FAERS Safety Report 7198358-6 (Version None)
Quarter: 2010Q4

REPORT INFORMATION
  Report Type: 
  Country: None (occurrence: None)
  Receive Date: 20101227
  Receipt Date: 20101217
  Transmission Date: 20110411
  Serious: No
  Sender: FDA-Public Use
  Company Number: US-JNJFOC-20101207057

PATIENT
  Sex: Female
  Weight: 129.28 kg

DRUGS (3)
  1. FENTANYL-100 [Suspect]
     Indication: BACK PAIN
     Route: 062
  2. ANTIBIOTIC UNSPECIFIED [Concomitant]
     Indication: STAPHYLOCOCCAL INFECTION
     Route: 042
  3. DEMEROL [Concomitant]
     Indication: BREAKTHROUGH PAIN
     Dosage: 1-2 TABLETS
     Route: 048

REACTIONS (4)
  - BREAKTHROUGH PAIN [None]
  - DRUG ADMINISTERED AT INAPPROPRIATE SITE [None]
  - PAIN [None]
  - PRODUCT ADHESION ISSUE [None]
